FAERS Safety Report 9192747 (Version 1)
Quarter: 2013Q1

REPORT INFORMATION
  Report Type: Spontaneous
  Country: US (occurrence: None)
  Receive Date: 20120703
  Receipt Date: 20120703
  Transmission Date: 20140127
  Serious: No
  Sender: FDA-Public Use
  Company Number: PHEH2012US009229

PATIENT
  Sex: Female

DRUGS (12)
  1. GILENYA (FTY) CAPSULE [Suspect]
     Route: 048
     Dates: start: 20120402
  2. SINGULAIR [Concomitant]
  3. GLIMEPIRIDE (GLIMEPIRIDE) [Concomitant]
  4. ATORVASTATIN (ATORVASTATIN) [Concomitant]
  5. PANTOPRAZOLE (PANTOPRAZOLE) [Concomitant]
  6. VICTOZA (LIRAGLUTIDE) [Concomitant]
  7. RANITIDINE (RANITIDINE) [Concomitant]
  8. ADVAIR (FLUTICASONE PROOPIONATE, SALMETEROL XINAFOATE) [Concomitant]
  9. ALLEGRA [Concomitant]
  10. PRISTIQ (DESVENLAFAXINE SUCCINATE) [Concomitant]
  11. BENICAR (OLMESARTAN MEDOXOMIL) [Concomitant]
  12. METFORMIN (METFORMIN) [Concomitant]

REACTIONS (2)
  - Musculoskeletal stiffness [None]
  - Vision blurred [None]
